FAERS Safety Report 6480055-3 (Version None)
Quarter: 2009Q4

REPORT INFORMATION
  Report Type: 
  Country: None (occurrence: None)
  Receive Date: 20091208
  Receipt Date: 20091126
  Transmission Date: 20100525
  Serious: Yes (Other)
  Sender: FDA-Public Use
  Company Number: JP-SANOFI-AVENTIS-2009SA002516

PATIENT
  Age: 64 Year
  Sex: Male
  Weight: 60 kg

DRUGS (2)
  1. CLEXANE [Suspect]
     Indication: THROMBOSIS PROPHYLAXIS
     Route: 058
     Dates: start: 20090827, end: 20090829
  2. PENTCILLIN [Concomitant]
     Indication: PROPHYLAXIS
     Route: 041
     Dates: start: 20090826, end: 20090829

REACTIONS (2)
  - BLOOD BILIRUBIN INCREASED [None]
  - JAUNDICE [None]
